FAERS Safety Report 10880108 (Version 4)
Quarter: 2015Q2

REPORT INFORMATION
  Report Type: Spontaneous
  Country: US (occurrence: US)
  Receive Date: 20150302
  Receipt Date: 20150520
  Transmission Date: 20150821
  Serious: Yes (Other)
  Sender: FDA-Public Use
  Company Number: US-PFIZER INC-2015070852

PATIENT
  Age: 62 Year
  Sex: Male
  Weight: 115 kg

DRUGS (2)
  1. CELEBREX [Suspect]
     Active Substance: CELECOXIB
     Indication: PROCEDURAL PAIN
     Dosage: 200 MG, 2X/DAY
     Route: 048
     Dates: start: 201502, end: 20150309
  2. CELEBREX [Suspect]
     Active Substance: CELECOXIB
     Dosage: 2X/DAY
     Route: 048
     Dates: start: 20150318, end: 20150323

REACTIONS (9)
  - Stevens-Johnson syndrome [Recovered/Resolved]
  - Erythema [Unknown]
  - Flushing [Unknown]
  - Headache [Recovered/Resolved]
  - Pyrexia [Unknown]
  - Chromaturia [Unknown]
  - Nausea [Recovered/Resolved]
  - Rash morbilliform [Not Recovered/Not Resolved]
  - Anxiety [Recovered/Resolved]

NARRATIVE: CASE EVENT DATE: 20150222
